FAERS Safety Report 26179746 (Version 1)
Quarter: 2025Q4

REPORT INFORMATION
  Report Type: Spontaneous
  Country: EU (occurrence: EU)
  Receive Date: 20251219
  Receipt Date: 20251219
  Transmission Date: 20260118
  Serious: Yes (Other)
  Sender: AUROBINDO
  Company Number: EU-AFSSAPS-AVNT2025000849

PATIENT
  Age: 19 Year
  Sex: Male

DRUGS (1)
  1. ALPRAZOLAM [Suspect]
     Active Substance: ALPRAZOLAM
     Indication: Product used for unknown indication
     Dosage: 0.5 MILLIGRAM, ONCE A DAY AT LEAST 3
     Route: 065

REACTIONS (1)
  - Drug use disorder [Not Recovered/Not Resolved]
